APPROVED DRUG PRODUCT: ESTRADIOL
Active Ingredient: ESTRADIOL
Strength: 0.06MG/24HR
Dosage Form/Route: FILM, EXTENDED RELEASE;TRANSDERMAL
Application: A075182 | Product #005 | TE Code: AB2
Applicant: MYLAN TECHNOLOGIES INC
Approved: Jul 20, 2006 | RLD: No | RS: No | Type: RX